FAERS Safety Report 13209209 (Version 1)
Quarter: 2017Q1

REPORT INFORMATION
  Report Type: Spontaneous
  Country: US (occurrence: US)
  Receive Date: 20170209
  Receipt Date: 20170209
  Transmission Date: 20170428
  Serious: No
  Sender: FDA-Public Use
  Company Number: US-PERRIGO-16US000114

PATIENT
  Age: 1 Year
  Sex: Male
  Weight: 12.34 kg

DRUGS (3)
  1. IBUPROFEN. [Suspect]
     Active Substance: IBUPROFEN
     Indication: PAIN
  2. IBUPROFEN. [Suspect]
     Active Substance: IBUPROFEN
     Indication: NASOPHARYNGITIS
  3. IBUPROFEN. [Suspect]
     Active Substance: IBUPROFEN
     Indication: OROPHARYNGEAL PAIN
     Dosage: 100 MG, SINGLE
     Route: 048
     Dates: start: 20160102, end: 20160102

REACTIONS (1)
  - Vomiting [Unknown]

NARRATIVE: CASE EVENT DATE: 20160105
